FAERS Safety Report 12784361 (Version 1)
Quarter: 2016Q3

REPORT INFORMATION
  Report Type: Spontaneous
  Country: CA (occurrence: CA)
  Receive Date: 20160927
  Receipt Date: 20160927
  Transmission Date: 20161109
  Serious: Yes (Other)
  Sender: FDA-Public Use
  Company Number: CA-BEH-2010022443

PATIENT
  Age: 30 Year
  Sex: Female

DRUGS (1)
  1. PRIVIGEN [Suspect]
     Active Substance: HUMAN IMMUNOGLOBULIN G
     Dosage: 150 CC/HOUR
     Route: 042
     Dates: start: 20091209, end: 20091209

REACTIONS (2)
  - Blood pressure increased [Unknown]
  - Hypoxia [Unknown]

NARRATIVE: CASE EVENT DATE: 20091209
